FAERS Safety Report 21381957 (Version 1)
Quarter: 2022Q3

REPORT INFORMATION
  Report Type: Spontaneous
  Country: NL (occurrence: NL)
  Receive Date: 20220927
  Receipt Date: 20220927
  Transmission Date: 20221027
  Serious: Yes (Other)
  Sender: FDA-Public Use
  Company Number: NL-PFIZER INC-202201186857

PATIENT
  Age: 65 Year
  Sex: Male

DRUGS (4)
  1. PIPERACILLIN SODIUM\TAZOBACTAM SODIUM [Suspect]
     Active Substance: PIPERACILLIN SODIUM\TAZOBACTAM SODIUM
     Indication: Pneumonia
     Dosage: 4.5 MG, 3X/DAY
     Route: 042
     Dates: start: 20220714, end: 20220729
  2. KETOCONAZOLE [Concomitant]
     Active Substance: KETOCONAZOLE
     Indication: Pituitary-dependent Cushing^s syndrome
     Dosage: UNK
  3. METOPIRONE [Concomitant]
     Active Substance: METYRAPONE
     Indication: Pituitary-dependent Cushing^s syndrome
     Dosage: UNK
  4. ACETAMINOPHEN [Concomitant]
     Active Substance: ACETAMINOPHEN
     Dosage: UNK

REACTIONS (4)
  - Platelet count decreased [Unknown]
  - Diarrhoea haemorrhagic [Recovered/Resolved]
  - Haemoglobin decreased [Unknown]
  - Haemorrhage [Unknown]

NARRATIVE: CASE EVENT DATE: 20220715
